FAERS Safety Report 5217242-8 (Version None)
Quarter: 2007Q1

REPORT INFORMATION
  Report Type: 
  Country: None (occurrence: None)
  Receive Date: 20070119
  Receipt Date: 20070104
  Transmission Date: 20070707
  Serious: Yes (Life-Threatening)
  Sender: FDA-Public Use
  Company Number: ENC200700004

PATIENT
  Age: 62 Year
  Sex: Female

DRUGS (9)
  1. ARGATROBAN [Suspect]
     Indication: HEPARIN-INDUCED THROMBOCYTOPENIA
     Dosage: 0.5 UG/KG, CONTINUOUS, INTRAVENOUS
     Route: 042
     Dates: start: 20061211
  2. FUROSEMIDE [Concomitant]
  3. SIMVASTATIN [Concomitant]
  4. CITALOPRAM HYDROBROMIDE [Concomitant]
  5. L-THYROXINE (LEVOTHYROXINE) [Concomitant]
  6. PANTOZOL (PANTOPRAZOLE SODIUM) [Concomitant]
  7. METOCLOPRAMIDE HYDROCHLORIDE [Concomitant]
  8. MERONEM (MEROPENEM) [Concomitant]
  9. CALCITROL (CALCIUM CARBONATE, ERGOCALCIFEROL, RETINOL) [Concomitant]

REACTIONS (3)
  - CEREBROVASCULAR SPASM [None]
  - DISEASE RECURRENCE [None]
  - HYPOGLYCAEMIA [None]
